FAERS Safety Report 12628826 (Version 1)
Quarter: 2016Q3

REPORT INFORMATION
  Report Type: Spontaneous
  Country: US (occurrence: None)
  Receive Date: 20160805
  Receipt Date: 20160805
  Transmission Date: 20161109
  Serious: No
  Sender: FDA-Public Use
  Company Number: None

PATIENT

DRUGS (1)
  1. TRIPLE ANTIBIOTIC OINTMENT [Suspect]
     Active Substance: BACITRACIN ZINC\NEOMYCIN\NEOMYCIN SULFATE\POLYMYXIN B SULFATE

REACTIONS (2)
  - Feeling abnormal [None]
  - Tooth infection [None]

NARRATIVE: CASE EVENT DATE: 20160803
